FAERS Safety Report 7929812-4 (Version None)
Quarter: 2011Q4

REPORT INFORMATION
  Report Type: 
  Country: None (occurrence: None)
  Receive Date: 20111117
  Receipt Date: 20111117
  Transmission Date: 20120403
  Serious: No
  Sender: FDA-Public Use
  Company Number: None

PATIENT
  Age: 75 Year
  Sex: Male
  Weight: 65.7716 kg

DRUGS (1)
  1. PRADAXA [Suspect]
     Dosage: 1 CAPSULE TWICE DAILY
     Dates: start: 20110808, end: 20110818

REACTIONS (3)
  - RASH GENERALISED [None]
  - HICCUPS [None]
  - COUGH [None]
